FAERS Safety Report 6318672-3 (Version None)
Quarter: 2009Q3

REPORT INFORMATION
  Report Type: 
  Country: None (occurrence: None)
  Receive Date: 20090819
  Receipt Date: 20090810
  Transmission Date: 20100115
  Serious: Yes (Hospitalization)
  Sender: FDA-Public Use
  Company Number: 2007308882

PATIENT
  Age: 67 Year
  Sex: Female

DRUGS (8)
  1. ROGAINE [Suspect]
     Indication: ALOPECIA
     Dosage: 1 ML ONCE (1 ML, 1 IN 1 D), TOPICAL
     Route: 061
     Dates: start: 20070103, end: 20070103
  2. ANTIHYPERTENSIVES (ANTIHYPERTENSIVES) [Concomitant]
  3. BELOC-ZOK MITE (METOPROLOL SUCCINATE) [Concomitant]
  4. ACETYLSALICYLIC ACID SRT [Concomitant]
  5. ATACAND HCT [Concomitant]
  6. FLUVASTATIN SODIUM [Concomitant]
  7. NEXIUM [Concomitant]
  8. LEVOTHYROXINE SODIUM [Concomitant]

REACTIONS (16)
  - ANXIETY [None]
  - BLOOD BILIRUBIN INCREASED [None]
  - BLOOD CHOLESTEROL INCREASED [None]
  - BLOOD CREATINE ABNORMAL [None]
  - CIRCULATORY COLLAPSE [None]
  - COMA [None]
  - DEPRESSION [None]
  - DIZZINESS [None]
  - GASTRITIS [None]
  - GENERAL PHYSICAL HEALTH DETERIORATION [None]
  - HYPERTENSION [None]
  - HYPOKALAEMIA [None]
  - LOW DENSITY LIPOPROTEIN INCREASED [None]
  - NAUSEA [None]
  - TREMOR [None]
  - VOMITING [None]
